FAERS Safety Report 25196231 (Version 2)
Quarter: 2025Q2

REPORT INFORMATION
  Report Type: Report from Study
  Country: US (occurrence: US)
  Receive Date: 20250415
  Receipt Date: 20250618
  Transmission Date: 20250717
  Serious: Yes (Hospitalization, Other)
  Sender: TAKEDA
  Company Number: US-TAKEDA-2025TUS034761

PATIENT
  Age: 69 Year
  Sex: Male

DRUGS (36)
  1. TEDUGLUTIDE [Suspect]
     Active Substance: TEDUGLUTIDE
     Indication: Short-bowel syndrome
     Dosage: 3.97 MILLIGRAM, QD
     Dates: start: 20171107, end: 20180326
  2. TEDUGLUTIDE [Suspect]
     Active Substance: TEDUGLUTIDE
     Dosage: 3.97 MILLIGRAM, 4/WEEK
     Dates: start: 20180504, end: 20190614
  3. TEDUGLUTIDE [Suspect]
     Active Substance: TEDUGLUTIDE
     Dosage: 3.97 MILLIGRAM, QD
     Dates: start: 20190617, end: 20190906
  4. TEDUGLUTIDE [Suspect]
     Active Substance: TEDUGLUTIDE
     Dosage: 3.8 MILLIGRAM, 3/WEEK
     Dates: start: 20190906, end: 20191115
  5. TEDUGLUTIDE [Suspect]
     Active Substance: TEDUGLUTIDE
     Dosage: 3.8 MILLIGRAM, 5/WEEK
     Dates: start: 20191115
  6. DRISDOL [Concomitant]
     Active Substance: ERGOCALCIFEROL
     Indication: Vitamin D deficiency
     Dosage: UNK UNK, QD
  7. LOMOTIL [Concomitant]
     Active Substance: ATROPINE SULFATE\DIPHENOXYLATE HYDROCHLORIDE
     Indication: Diarrhoea
  8. IMODIUM [Concomitant]
     Active Substance: LOPERAMIDE HYDROCHLORIDE
     Indication: Diarrhoea
  9. VENOFER [Concomitant]
     Active Substance: IRON SUCROSE
     Indication: Iron deficiency
  10. SODIUM CHLORIDE [Concomitant]
     Active Substance: SODIUM CHLORIDE
     Indication: Colitis ulcerative
  11. CYANOCOBALAMIN [Concomitant]
     Active Substance: CYANOCOBALAMIN
     Indication: Malabsorption
     Dosage: 1000 MICROGRAM, MONTHLY
  12. FERRIC POLYSACCHARIDE COMPLEX [Concomitant]
     Active Substance: FERRIC POLYSACCHARIDE COMPLEX
     Indication: Iron deficiency
     Dosage: UNK UNK, QOD
  13. MAGNESIUM OXIDE [Concomitant]
     Active Substance: MAGNESIUM OXIDE
     Indication: Hypomagnesaemia
     Dosage: 399 MILLIGRAM, TID
  14. AMOXICILLIN\CLAVULANIC ACID [Concomitant]
     Active Substance: AMOXICILLIN\CLAVULANIC ACID
     Indication: Gastrointestinal microorganism overgrowth
     Dosage: UNK, Q12H
  15. CALCIUM CARBONATE [Concomitant]
     Active Substance: CALCIUM CARBONATE
     Indication: Calcium deficiency
     Dosage: 648 MILLIGRAM, QD
  16. MECLIZINE HYDROCHLORIDE [Concomitant]
     Active Substance: MECLIZINE HYDROCHLORIDE
     Indication: Nausea
  17. ZOFRAN [Concomitant]
     Active Substance: ONDANSETRON HYDROCHLORIDE
     Indication: Nausea
     Dosage: 4 MILLIGRAM, Q8HR
  18. TRAMADOL HCL [Concomitant]
     Active Substance: TRAMADOL HYDROCHLORIDE
  19. VITAMIN D2 [Concomitant]
     Active Substance: ERGOCALCIFEROL
     Indication: Malabsorption
     Dosage: UNK UNK, 3/WEEK
  20. COPPER GLUCONATE [Concomitant]
     Active Substance: COPPER GLUCONATE
     Dosage: 2 MILLIGRAM, QD
  21. LEVOTHYROXINE [Concomitant]
     Active Substance: LEVOTHYROXINE
     Dosage: 225 MICROGRAM, QD
  22. TADALAFIL [Concomitant]
     Active Substance: TADALAFIL
     Indication: Vasodilation procedure
  23. FLUTICASONE PROPIONATE\SALMETEROL XINAFOATE [Concomitant]
     Active Substance: FLUTICASONE PROPIONATE\SALMETEROL XINAFOATE
     Indication: Asthma
     Dosage: 250 MICROGRAM, BID
  24. VITAMIN C [Concomitant]
     Active Substance: ASCORBIC ACID
     Indication: Vitamin C deficiency
     Dosage: 500 MILLIGRAM, QD
  25. UBIDECARENONE [Concomitant]
     Active Substance: UBIDECARENONE
     Indication: Mitochondrial myopathy
  26. WARFARIN [Concomitant]
     Active Substance: WARFARIN
     Indication: Anticoagulant therapy
     Dosage: 2 MILLIGRAM, QD
  27. FOLIC ACID [Concomitant]
     Active Substance: FOLIC ACID
     Indication: Malabsorption
     Dosage: 1 MILLIGRAM, QD
  28. ALBUTEROL\IPRATROPIUM [Concomitant]
     Active Substance: ALBUTEROL\IPRATROPIUM
     Indication: Chronic obstructive pulmonary disease
  29. MELATONIN [Concomitant]
     Active Substance: MELATONIN
     Dosage: 5 MILLIGRAM, QD
  30. Metamucil sugar free [Concomitant]
     Indication: Constipation prophylaxis
  31. PRILOSEC [Concomitant]
     Active Substance: OMEPRAZOLE MAGNESIUM
     Dosage: 20 MILLIGRAM, QD
  32. ALBUTEROL SULFATE [Concomitant]
     Active Substance: ALBUTEROL SULFATE
  33. RIFAXIMIN [Concomitant]
     Active Substance: RIFAXIMIN
     Indication: Gastrointestinal microorganism overgrowth
     Dosage: 550 MILLIGRAM, TID
     Dates: start: 202205
  34. DOXYCYCLINE [Concomitant]
     Active Substance: DOXYCYCLINE
     Indication: Gastrointestinal microorganism overgrowth
     Dosage: 100 MILLIGRAM, BID
     Dates: start: 202205
  35. AUGMENTIN [Concomitant]
     Active Substance: AMOXICILLIN\CLAVULANATE POTASSIUM
     Indication: Gastrointestinal microorganism overgrowth
     Dosage: UNK UNK, BID
     Dates: start: 202205
  36. SODIUM CHLORIDE [Concomitant]
     Active Substance: SODIUM CHLORIDE
     Dosage: 10 MILLIGRAM, TID

REACTIONS (6)
  - Chest pain [Recovered/Resolved]
  - Nephrolithiasis [Recovered/Resolved]
  - Ileus [Recovered/Resolved]
  - Visual impairment [Recovered/Resolved]
  - Weight decreased [Recovered/Resolved]
  - Gastrointestinal stoma output increased [Recovered/Resolved]

NARRATIVE: CASE EVENT DATE: 20211022
